FAERS Safety Report 7049578-2 (Version None)
Quarter: 2010Q4

REPORT INFORMATION
  Report Type: 
  Country: None (occurrence: None)
  Receive Date: 20101012
  Receipt Date: 20100928
  Transmission Date: 20110411
  Serious: Yes (Death, Hospitalization)
  Sender: FDA-Public Use
  Company Number: VAL_00464_2010

PATIENT

DRUGS (2)
  1. EQUETRO [Suspect]
     Indication: BIPOLAR I DISORDER
     Dosage: (DF)
     Dates: start: 20100101
  2. WELLBUTRIN [Concomitant]

REACTIONS (1)
  - DEATH [None]
